FAERS Safety Report 7750789-9 (Version None)
Quarter: 2011Q3

REPORT INFORMATION
  Report Type: 
  Country: None (occurrence: None)
  Receive Date: 20110914
  Receipt Date: 20110907
  Transmission Date: 20111222
  Serious: Yes (Other)
  Sender: FDA-Public Use
  Company Number: IE-JNJFOC-20110810042

PATIENT
  Age: 11 Year
  Sex: Female

DRUGS (3)
  1. RISPERIDONE [Suspect]
     Indication: AUTISM
     Route: 048
     Dates: start: 20100101
  2. CHLORPHENIRAMINE MALEATE [Interacting]
     Indication: SEASONAL ALLERGY
     Route: 065
  3. RISPERIDONE [Suspect]
     Indication: ABNORMAL BEHAVIOUR
     Route: 048
     Dates: start: 20100101

REACTIONS (3)
  - ANXIETY [None]
  - DRUG INTERACTION [None]
  - STEREOTYPY [None]
